FAERS Safety Report 9053275 (Version 1)
Quarter: 2013Q1

REPORT INFORMATION
  Report Type: Spontaneous
  Country: FR (occurrence: FR)
  Receive Date: 20130208
  Receipt Date: 20130208
  Transmission Date: 20140127
  Serious: Yes (Death, Life-Threatening, Hospitalization)
  Sender: FDA-Public Use
  Company Number: FR-GE HEALTHCARE MEDICAL DIAGNOSTICS-OMPQ-NO-1302S-0134

PATIENT
  Age: 70 None
  Sex: Male

DRUGS (12)
  1. OMNIPAQUE [Suspect]
     Indication: PRODUCT USED FOR UNKNOWN INDICATION
     Route: 042
     Dates: start: 20120406, end: 20120406
  2. OMNIPAQUE [Suspect]
     Indication: DIAGNOSTIC PROCEDURE
  3. CORDARONE [Concomitant]
  4. INEXIUM [Concomitant]
  5. UN-ALFA [Concomitant]
  6. DELURSAN [Concomitant]
  7. ALDACTONE [Concomitant]
  8. CARDENSIEL [Concomitant]
  9. ARANESP [Concomitant]
  10. VENOFER [Concomitant]
  11. VENOFER [Concomitant]
  12. CALCIPARINE [Concomitant]

REACTIONS (2)
  - Cardiogenic shock [Fatal]
  - Cardio-respiratory arrest [Recovered/Resolved]
